FAERS Safety Report 5652948-8 (Version None)
Quarter: 2008Q1

REPORT INFORMATION
  Report Type: 
  Country: None (occurrence: None)
  Receive Date: 20080306
  Receipt Date: 20080229
  Transmission Date: 20080703
  Serious: Yes (Hospitalization)
  Sender: FDA-Public Use
  Company Number: BE-ASTRAZENECA-1998AP44829

PATIENT
  Age: 57 Year
  Sex: Female

DRUGS (9)
  1. MEROPENEM [Suspect]
     Indication: NOSOCOMIAL INFECTION
     Route: 042
     Dates: start: 19971203, end: 19971215
  2. VALPROATE SODIUM [Interacting]
     Indication: EPILEPSY
  3. AMIKACIN [Concomitant]
     Indication: PNEUMONIA
     Route: 042
     Dates: start: 19971124, end: 19971215
  4. FLUCONAZOLE [Concomitant]
     Indication: MYCOSIS FUNGOIDES
     Route: 042
     Dates: start: 19971202, end: 19971215
  5. PHENYTOIN [Concomitant]
     Indication: PROPHYLAXIS
     Route: 042
     Dates: start: 19971121, end: 19971205
  6. NIMODIPINE [Concomitant]
     Dosage: 5       MG/KG
     Route: 042
     Dates: start: 19971113, end: 19971205
  7. LOSEC I.V. [Concomitant]
     Indication: PROPHYLAXIS
     Route: 042
     Dates: start: 19971127, end: 19971216
  8. FENTANYL [Concomitant]
     Route: 042
     Dates: start: 19971127, end: 19971206
  9. MIDAZOLAM HCL [Concomitant]
     Route: 042
     Dates: start: 19971127, end: 19971206

REACTIONS (2)
  - ANTICONVULSANT DRUG LEVEL BELOW THERAPEUTIC [None]
  - DRUG INTERACTION [None]
